FAERS Safety Report 13717202 (Version 1)
Quarter: 2017Q3

REPORT INFORMATION
  Report Type: Report from Study
  Country: CA (occurrence: CA)
  Receive Date: 20170705
  Receipt Date: 20170705
  Transmission Date: 20171127
  Serious: Yes (Hospitalization)
  Sender: FDA-Public Use
  Company Number: CA-JNJFOC-20170625066

PATIENT
  Age: 49 Year
  Sex: Male

DRUGS (1)
  1. STELARA [Suspect]
     Active Substance: USTEKINUMAB
     Indication: PSORIASIS
     Route: 058
     Dates: start: 20130121

REACTIONS (4)
  - Off label use [Unknown]
  - Cerebrovascular accident [Unknown]
  - Injection site infection [Unknown]
  - Product use issue [Unknown]

NARRATIVE: CASE EVENT DATE: 20130121
